FAERS Safety Report 5848599-2 (Version None)
Quarter: 2008Q3

REPORT INFORMATION
  Report Type: 
  Country: None (occurrence: None)
  Receive Date: 20080815
  Receipt Date: 20080815
  Transmission Date: 20090109
  Serious: Yes (Other)
  Sender: FDA-Public Use
  Company Number: None

PATIENT
  Age: 68 Year
  Sex: Female
  Weight: 71.6683 kg

DRUGS (1)
  1. ACTONEL [Suspect]
     Indication: OSTEOPENIA
     Dosage: 1 TABLET ONCE A MONTH PO
     Route: 048
     Dates: start: 20080701, end: 20080701

REACTIONS (4)
  - ARTHRALGIA [None]
  - DISCOMFORT [None]
  - MYALGIA [None]
  - NECK PAIN [None]
